FAERS Safety Report 8214297-3 (Version None)
Quarter: 2012Q1

REPORT INFORMATION
  Report Type: 
  Country: None (occurrence: None)
  Receive Date: 20120315
  Receipt Date: 20120315
  Transmission Date: 20120608
  Serious: Yes (Hospitalization)
  Sender: FDA-Public Use
  Company Number: None

PATIENT
  Sex: Male
  Weight: 77.2 kg

DRUGS (1)
  1. SULFASALAZINE [Suspect]
     Dosage: 7000 MG
     Dates: start: 20120305

REACTIONS (2)
  - MELAENA [None]
  - HAEMOGLOBIN DECREASED [None]
